FAERS Safety Report 18955900 (Version 3)
Quarter: 2021Q2

REPORT INFORMATION
  Report Type: Spontaneous
  Country: US (occurrence: US)
  Receive Date: 20210302
  Receipt Date: 20210507
  Transmission Date: 20210717
  Serious: Yes (Hospitalization)
  Sender: FDA-Public Use
  Company Number: US-FARMAPROD-202102-0230

PATIENT
  Sex: Male
  Weight: 65.83 kg

DRUGS (3)
  1. MOXIFLOXACIN. [Concomitant]
     Active Substance: MOXIFLOXACIN
  2. OXERVATE [Suspect]
     Active Substance: CENEGERMIN-BKBJ
     Indication: NEUROTROPHIC KERATOPATHY
     Route: 047
     Dates: start: 20210125
  3. PROCYSBI [Concomitant]
     Active Substance: CYSTEAMINE BITARTRATE
     Indication: CYSTINOSIS

REACTIONS (3)
  - Keratitis [Unknown]
  - Cystitis [Unknown]
  - Abdominal discomfort [Unknown]
